FAERS Safety Report 20446919 (Version 1)
Quarter: 2022Q1

REPORT INFORMATION
  Report Type: Spontaneous
  Country: US (occurrence: US)
  Receive Date: 20220208
  Receipt Date: 20220208
  Transmission Date: 20220423
  Serious: No
  Sender: FDA-Public Use
  Company Number: US-HORIZON THERAPEUTICS-HZN-2021-001316

PATIENT
  Sex: Female

DRUGS (1)
  1. ACTIMMUNE [Suspect]
     Active Substance: INTERFERON GAMMA-1B
     Indication: Product used for unknown indication
     Dosage: 0.5 ML, THREE TIMES A WEEK
     Route: 058
     Dates: start: 20210204

REACTIONS (1)
  - COVID-19 [Unknown]
